FAERS Safety Report 7737178-8 (Version None)
Quarter: 2011Q3

REPORT INFORMATION
  Report Type: 
  Country: None (occurrence: None)
  Receive Date: 20110908
  Receipt Date: 20110831
  Transmission Date: 20111222
  Serious: Yes (Hospitalization)
  Sender: FDA-Public Use
  Company Number: US-ROCHE-800758

PATIENT
  Sex: Female

DRUGS (1)
  1. BONIVA [Suspect]
     Route: 065

REACTIONS (2)
  - ORAL DISORDER [None]
  - PLATELET COUNT DECREASED [None]
